FAERS Safety Report 4452111-2 (Version None)
Quarter: 2004Q3

REPORT INFORMATION
  Report Type: 
  Country: None (occurrence: None)
  Receive Date: 20040916
  Receipt Date: 20040329
  Transmission Date: 20050211
  Serious: Yes (Other)
  Sender: FDA-Public Use
  Company Number: PHEH2004US03618

PATIENT
  Age: 58 Year
  Sex: Male

DRUGS (19)
  1. ZOMETA [Suspect]
     Indication: METASTASES TO BONE
     Dosage: 4 MG EVERY MONTH
     Dates: start: 20021201, end: 20040401
  2. HYDROCORTISONE [Concomitant]
     Dosage: 30 MG, QD
     Route: 048
     Dates: start: 20001001, end: 20010501
  3. CYTOXAN [Concomitant]
     Indication: PROSTATE CANCER
     Dosage: 50 MG, BID
     Dates: start: 20020501, end: 20030101
  4. CARBOPLATIN [Concomitant]
     Indication: PROSTATE CANCER
     Dosage: 200 MG, UNK
     Dates: start: 20010901, end: 20020101
  5. TAXOTERE [Concomitant]
     Indication: PROSTATE CANCER
     Dosage: 50 MG, UNK
     Dates: start: 20010901, end: 20020101
  6. LUPRON [Concomitant]
     Indication: PROSTATE CANCER
     Dosage: 7.5 MG, UNK
     Dates: start: 20000801
  7. ARANESP [Concomitant]
  8. CALCITRIOL [Concomitant]
  9. VITAMIN B6 [Concomitant]
  10. CELEBREX [Concomitant]
  11. WELLBUTRIN SR [Concomitant]
  12. DOSTINEX [Concomitant]
  13. IRON [Concomitant]
  14. LOVENOX [Concomitant]
  15. THALIDOMIDE [Concomitant]
  16. AVODART [Concomitant]
  17. AREDIA [Suspect]
     Indication: METASTASES TO BONE
     Dosage: 90 MG - 120 MG QMO
     Dates: start: 20000601, end: 20011101
  18. EPOGEN [Concomitant]
  19. SANDOGLOBULIN [Concomitant]

REACTIONS (9)
  - ACTINOMYCOSIS [None]
  - ALVEOLOPLASTY [None]
  - BONE DEBRIDEMENT [None]
  - OSTEOMYELITIS [None]
  - OSTEONECROSIS [None]
  - SEQUESTRECTOMY [None]
  - SURGERY [None]
  - TOOTH EXTRACTION [None]
  - TOOTH INFECTION [None]
